FAERS Safety Report 9429699 (Version 3)
Quarter: 2013Q4

REPORT INFORMATION
  Report Type: Report from Study
  Country: US (occurrence: US)
  Receive Date: 20130730
  Receipt Date: 20131021
  Transmission Date: 20140711
  Serious: Yes (Hospitalization, Other)
  Sender: FDA-Public Use
  Company Number: US-ACTELION-A-US2013-86232

PATIENT
  Age: 39 Year
  Sex: Female

DRUGS (4)
  1. VELETRI [Suspect]
     Indication: PULMONARY ARTERIAL HYPERTENSION
     Dosage: 32 UNK, UNK
     Route: 042
     Dates: start: 20110829
  2. VELETRI [Suspect]
     Dosage: 27.5 NG/KG, PER MIN
     Route: 042
     Dates: start: 20110829
  3. LETAIRIS [Concomitant]
  4. ADCIRCA [Concomitant]

REACTIONS (9)
  - Gastric polyps [Recovering/Resolving]
  - Gastrointestinal haemorrhage [Recovering/Resolving]
  - Malaise [Recovering/Resolving]
  - Normochromic normocytic anaemia [Recovering/Resolving]
  - Loss of consciousness [Recovering/Resolving]
  - Asthenia [Recovering/Resolving]
  - Kidney infection [Unknown]
  - Muscle strain [Unknown]
  - Mineral supplementation [Recovering/Resolving]
